FAERS Safety Report 24253447 (Version 1)
Quarter: 2024Q3

REPORT INFORMATION
  Report Type: Spontaneous
  Country: RO (occurrence: RO)
  Receive Date: 20240827
  Receipt Date: 20240827
  Transmission Date: 20241017
  Serious: Yes (Hospitalization)
  Sender: ROCHE
  Company Number: None

PATIENT
  Age: 68 Year
  Sex: Female
  Weight: 66 kg

DRUGS (1)
  1. ATEZOLIZUMAB [Suspect]
     Active Substance: ATEZOLIZUMAB
     Indication: Transitional cell carcinoma
     Dosage: 1200 MG
     Route: 042
     Dates: start: 20240717, end: 20240717

REACTIONS (2)
  - Purpura [Recovering/Resolving]
  - Autoimmune nephritis [Recovering/Resolving]

NARRATIVE: CASE EVENT DATE: 20240801
